FAERS Safety Report 7443699-8 (Version None)
Quarter: 2011Q2

REPORT INFORMATION
  Report Type: 
  Country: None (occurrence: None)
  Receive Date: 20110428
  Receipt Date: 20110427
  Transmission Date: 20111010
  Serious: Yes (Hospitalization, Other)
  Sender: FDA-Public Use
  Company Number: US-ABBOTT-11P-163-0721914-00

PATIENT
  Sex: Female
  Weight: 77.18 kg

DRUGS (5)
  1. HUMIRA [Suspect]
     Dates: start: 20110401
  2. HUMIRA [Suspect]
     Indication: RHEUMATOID ARTHRITIS
     Dates: start: 20090101, end: 20110302
  3. VITAMINS [Concomitant]
     Indication: VITAMIN SUPPLEMENTATION
  4. METHOTREXATE [Concomitant]
     Indication: RHEUMATOID ARTHRITIS
  5. TOPROL-XL [Concomitant]
     Indication: HEART RATE IRREGULAR

REACTIONS (6)
  - JOINT SPRAIN [None]
  - ANKLE FRACTURE [None]
  - JOINT INJURY [None]
  - JOINT DISLOCATION [None]
  - FALL [None]
  - ARTHRALGIA [None]
